FAERS Safety Report 24063055 (Version 1)
Quarter: 2024Q3

REPORT INFORMATION
  Report Type: Spontaneous
  Country: US (occurrence: US)
  Receive Date: 20240709
  Receipt Date: 20240709
  Transmission Date: 20241017
  Serious: Yes (Other)
  Sender: JOHNSON AND JOHNSON
  Company Number: US-JNJFOC-20240706630

PATIENT
  Age: 14 Year
  Sex: Male

DRUGS (4)
  1. RISPERDAL [Suspect]
     Active Substance: RISPERIDONE
     Indication: Generalised anxiety disorder
     Dosage: IN VARYING DOSES AND FREQUENCIES FROM 1 MG TO 4 MG.
     Route: 048
     Dates: start: 20060106, end: 20140424
  2. RISPERDAL [Suspect]
     Active Substance: RISPERIDONE
     Indication: Aggression
  3. CONCERTA [Suspect]
     Active Substance: METHYLPHENIDATE HYDROCHLORIDE
     Indication: Attention deficit hyperactivity disorder
     Dosage: 18 MG AND 36 MG TABLET ONCE IN THE AM
     Route: 048
     Dates: start: 20130104
  4. CONCERTA [Suspect]
     Active Substance: METHYLPHENIDATE HYDROCHLORIDE
     Dosage: 18 MG ONCE IN THE AFTERNOON AND 36 MG TABLET ONCE IN THE AM
     Route: 048
     Dates: end: 20150622

REACTIONS (6)
  - Obesity [Recovering/Resolving]
  - Electrocardiogram QT prolonged [Unknown]
  - Hyperprolactinaemia [Unknown]
  - Increased appetite [Recovering/Resolving]
  - Nausea [Unknown]
  - Tremor [Unknown]

NARRATIVE: CASE EVENT DATE: 20140101
